FAERS Safety Report 9741930 (Version 1)
Quarter: 2013Q4

REPORT INFORMATION
  Report Type: Spontaneous
  Country: GB (occurrence: GB)
  Receive Date: 20131210
  Receipt Date: 20131210
  Transmission Date: 20140711
  Serious: Yes (Other)
  Sender: FDA-Public Use
  Company Number: GB-ROCHE-1314260

PATIENT
  Sex: Male

DRUGS (1)
  1. GANCICLOVIR [Suspect]
     Indication: PRODUCT USED FOR UNKNOWN INDICATION
     Dosage: GANCICLOVIR 500MG POWDER FOR SOLUTION FOR INFUSION VIALS
     Route: 042

REACTIONS (1)
  - Bone marrow transplant [Unknown]
